FAERS Safety Report 6235500-5 (Version None)
Quarter: 2009Q2

REPORT INFORMATION
  Report Type: 
  Country: None (occurrence: None)
  Receive Date: 20090618
  Receipt Date: 20080715
  Transmission Date: 20091009
  Serious: No
  Sender: FDA-Public Use
  Company Number: US-ASTRAZENECA-2008UW11442

PATIENT
  Age: 87 Year
  Sex: Female
  Weight: 63.5 kg

DRUGS (5)
  1. RHINOCORT [Suspect]
     Indication: SINUS DISORDER
     Dosage: 1 SPRAY (32 UG) IN EACH NOSTRIL
     Route: 045
     Dates: start: 20080605
  2. QUINAPRIL [Concomitant]
  3. SIMVASTATIN [Concomitant]
  4. IRON [Concomitant]
  5. CITRICAL [Concomitant]

REACTIONS (2)
  - DRUG HYPERSENSITIVITY [None]
  - HEADACHE [None]
